FAERS Safety Report 7018215-5 (Version None)
Quarter: 2010Q3

REPORT INFORMATION
  Report Type: 
  Country: None (occurrence: None)
  Receive Date: 20100928
  Receipt Date: 20100923
  Transmission Date: 20110219
  Serious: No
  Sender: FDA-Public Use
  Company Number: US-CEPHALON-2010005091

PATIENT
  Sex: Male
  Weight: 104 kg

DRUGS (7)
  1. FENTORA [Suspect]
     Indication: BACK PAIN
     Route: 002
     Dates: start: 20080901, end: 20081101
  2. FENTORA [Suspect]
     Indication: NECK PAIN
     Route: 002
     Dates: start: 20081101
  3. FENTORA [Suspect]
     Route: 002
  4. OXYCODONE [Concomitant]
     Dates: start: 20030101
  5. METHADONE [Concomitant]
     Dates: start: 20030101
  6. LYRICA [Concomitant]
     Dates: start: 20040101
  7. CYMBALTA [Concomitant]
     Dates: start: 20040101

REACTIONS (6)
  - CIRCUMSTANCE OR INFORMATION CAPABLE OF LEADING TO MEDICATION ERROR [None]
  - DRUG EFFECT INCREASED [None]
  - DRUG PRESCRIBING ERROR [None]
  - DRUG TOLERANCE [None]
  - GINGIVAL RECESSION [None]
  - SKIN INFECTION [None]
